FAERS Safety Report 19983081 (Version 8)
Quarter: 2023Q1

REPORT INFORMATION
  Report Type: Spontaneous
  Country: US (occurrence: US)
  Receive Date: 20211021
  Receipt Date: 20230118
  Transmission Date: 20230418
  Serious: Yes (Hospitalization, Other)
  Sender: FDA-Public Use
  Company Number: US-SA-SAC20211020001183

PATIENT
  Age: 55 Year
  Sex: Female

DRUGS (4)
  1. DUPIXENT [Suspect]
     Active Substance: DUPILUMAB
     Indication: Dermatitis atopic
     Dosage: 600 MG, 1X
     Route: 058
     Dates: start: 202109, end: 202109
  2. DUPIXENT [Suspect]
     Active Substance: DUPILUMAB
     Dosage: 300 MG, QOW
     Route: 058
     Dates: start: 2021, end: 2021
  3. DUPIXENT [Suspect]
     Active Substance: DUPILUMAB
     Dosage: 300 MG, QOW
     Route: 058
     Dates: start: 2021
  4. CUBICIN [Concomitant]
     Active Substance: DAPTOMYCIN
     Dosage: UNK
     Route: 042

REACTIONS (6)
  - Infection [Unknown]
  - Knee arthroplasty [Unknown]
  - Surgery [Not Recovered/Not Resolved]
  - Leg amputation [Unknown]
  - Wound [Unknown]
  - Surgery [Unknown]

NARRATIVE: CASE EVENT DATE: 20210101
